FAERS Safety Report 9458027 (Version 1)
Quarter: 2013Q3

REPORT INFORMATION
  Report Type: Spontaneous
  Country: IT (occurrence: None)
  Receive Date: 20130812
  Receipt Date: 20130812
  Transmission Date: 20140515
  Serious: Yes (Hospitalization)
  Sender: FDA-Public Use
  Company Number: AUR-APL-2013-06527

PATIENT
  Age: 74 Year
  Sex: Male

DRUGS (3)
  1. METFORMIN [Suspect]
     Indication: DIABETES MELLITUS
     Route: 048
     Dates: start: 20130101, end: 20130706
  2. CARDIOASPIRIN (ACETYLSALICYLIC ACID) [Concomitant]
  3. GLIBENCLAMIDE (GLIBENCLAMIDE) [Concomitant]

REACTIONS (1)
  - Metabolic acidosis [None]
